FAERS Safety Report 14790294 (Version 1)
Quarter: 2018Q2

REPORT INFORMATION
  Report Type: Spontaneous
  Country: US (occurrence: US)
  Receive Date: 20180423
  Receipt Date: 20180423
  Transmission Date: 20180711
  Serious: No
  Sender: FDA-Public Use
  Company Number: US-009507513-1803USA012387

PATIENT
  Sex: Male

DRUGS (1)
  1. DULERA [Suspect]
     Active Substance: FORMOTEROL FUMARATE DIHYDRATE\MOMETASONE FUROATE
     Indication: ASTHMA-CHRONIC OBSTRUCTIVE PULMONARY DISEASE OVERLAP SYNDROME
     Dosage: 2 INHALATIONS, TWICE A DAY
     Route: 055
     Dates: start: 201704, end: 201712

REACTIONS (3)
  - Chronic obstructive pulmonary disease [Unknown]
  - Product quality issue [Unknown]
  - Product lot number issue [Unknown]
